FAERS Safety Report 6195342-6 (Version None)
Quarter: 2009Q2

REPORT INFORMATION
  Report Type: 
  Country: None (occurrence: None)
  Receive Date: 20090515
  Receipt Date: 20090508
  Transmission Date: 20091009
  Serious: Yes (Death)
  Sender: FDA-Public Use
  Company Number: DSA_33612_2009

PATIENT
  Sex: Female

DRUGS (14)
  1. XENAZINE [Suspect]
     Indication: HUNTINGTON'S CHOREA
     Dosage: (25 MG TID)
     Dates: start: 20040301, end: 20090501
  2. POTASSIUM CHLORIDE [Concomitant]
  3. ADVAIR HFA [Concomitant]
  4. ATROVENT [Concomitant]
  5. ZOPANIX [Concomitant]
  6. COUMADIN [Concomitant]
  7. COZAAR [Concomitant]
  8. DILTIAZEM [Concomitant]
  9. ESTRADIOL [Concomitant]
  10. LASIX [Concomitant]
  11. NEXIUM [Concomitant]
  12. RESTORIL /00393701/ [Concomitant]
  13. SINGULAIR [Concomitant]
  14. TUSSIONEX [Concomitant]

REACTIONS (1)
  - CARDIAC DISORDER [None]
